FAERS Safety Report 10961256 (Version 1)
Quarter: 2015Q1

REPORT INFORMATION
  Report Type: Spontaneous
  Country: US (occurrence: US)
  Receive Date: 20150327
  Receipt Date: 20150327
  Transmission Date: 20150721
  Serious: Yes (Hospitalization, Other)
  Sender: FDA-Public Use
  Company Number: US-GILEAD-2015-0139118

PATIENT
  Age: 60 Year
  Sex: Male

DRUGS (4)
  1. HARVONI [Suspect]
     Active Substance: LEDIPASVIR\SOFOSBUVIR
     Indication: HEPATITIS C
     Dosage: 1 DF, QD
     Route: 048
     Dates: start: 20141215, end: 20141224
  2. NADOLOL. [Concomitant]
     Active Substance: NADOLOL
  3. NEXIUM [Concomitant]
     Active Substance: ESOMEPRAZOLE MAGNESIUM
     Dosage: 40 MG, QD
  4. HARVONI [Suspect]
     Active Substance: LEDIPASVIR\SOFOSBUVIR
     Dosage: 1 DF, QD
     Route: 048
     Dates: start: 20150112

REACTIONS (5)
  - Gastrointestinal haemorrhage [Unknown]
  - Ascites [Unknown]
  - White blood cell count decreased [Recovered/Resolved]
  - Oedema peripheral [Unknown]
  - Fluid overload [Unknown]

NARRATIVE: CASE EVENT DATE: 201412
